FAERS Safety Report 7779092-8 (Version None)
Quarter: 2011Q3

REPORT INFORMATION
  Report Type: 
  Country: None (occurrence: None)
  Receive Date: 20110926
  Receipt Date: 20110915
  Transmission Date: 20111222
  Serious: Yes (Other)
  Sender: FDA-Public Use
  Company Number: US-PFIZER INC-2011219546

PATIENT
  Age: 61 Year
  Sex: Male

DRUGS (12)
  1. ATORVASTATIN [Concomitant]
  2. MINOXIDIL [Concomitant]
  3. ESOMEPRAZOLE [Concomitant]
  4. PREDNISONE [Concomitant]
     Indication: IMMUNOSUPPRESSION
     Dosage: 5 MG DAILY
  5. BENAZEPRIL [Concomitant]
  6. SIROLIMUS [Suspect]
     Indication: IMMUNOSUPPRESSION
     Dosage: 2 MG DAILY
     Dates: start: 20040101, end: 20100101
  7. PENTAMIDINE [Suspect]
     Dosage: UNK
     Dates: end: 20100101
  8. MYCOPHENOLATE MOFETIL [Concomitant]
     Indication: IMMUNOSUPPRESSION
     Dosage: 1500 MG DAILY
  9. FOLIC ACID [Concomitant]
  10. ATENOLOL [Concomitant]
  11. AMLODIPINE [Concomitant]
  12. ASPIRIN [Concomitant]

REACTIONS (2)
  - DRUG INTERACTION [None]
  - PNEUMONITIS [None]
